FAERS Safety Report 7680209-4 (Version None)
Quarter: 2011Q3

REPORT INFORMATION
  Report Type: 
  Country: None (occurrence: None)
  Receive Date: 20110811
  Receipt Date: 20110811
  Transmission Date: 20111222
  Serious: No
  Sender: FDA-Public Use
  Company Number: None

PATIENT
  Sex: Male

DRUGS (1)
  1. SUTENT [Suspect]
     Dosage: 50MG DAILY ORALLY
     Route: 048
     Dates: start: 20100806, end: 20110810

REACTIONS (2)
  - PAIN IN EXTREMITY [None]
  - HYPOAESTHESIA [None]
